FAERS Safety Report 7937317 (Version 5)
Quarter: 2014Q4

REPORT INFORMATION
  Report Type: Report from Study
  Country: US (occurrence: US)
  Receive Date: 20110509
  Receipt Date: 20141023
  Transmission Date: 20150529
  Serious: Yes (Hospitalization)
  Sender: FDA-Public Use
  Company Number: US-JNJFOC-20110411271

PATIENT
  Age: 27 Year
  Sex: Male
  Weight: 84.6 kg

DRUGS (4)
  1. AMBIEN [Suspect]
     Active Substance: ZOLPIDEM TARTRATE
     Indication: SLEEP DISORDER THERAPY
  2. SOMA [Suspect]
     Active Substance: CARISOPRODOL
     Indication: DRUG WITHDRAWAL SYNDROME
  3. HYDROCODONE [Suspect]
     Active Substance: HYDROCODONE
     Indication: DRUG WITHDRAWAL SYNDROME
  4. TYLENOL PM [Suspect]
     Active Substance: ACETAMINOPHEN\DIPHENHYDRAMINE
     Indication: SLEEP DISORDER THERAPY
     Route: 065

REACTIONS (5)
  - Overdose [Unknown]
  - Acute hepatic failure [Recovered/Resolved]
  - Renal failure [Recovered/Resolved]
  - Metabolic acidosis [Recovered/Resolved]
  - Agitation [Recovered/Resolved]

NARRATIVE: CASE EVENT DATE: 20110417
